FAERS Safety Report 5659854-3 (Version None)
Quarter: 2008Q1

REPORT INFORMATION
  Report Type: 
  Country: None (occurrence: None)
  Receive Date: 20080311
  Receipt Date: 20070730
  Transmission Date: 20080703
  Serious: No
  Sender: FDA-Public Use
  Company Number: US-BAYER-200712417BCC

PATIENT
  Age: 63 Year
  Sex: Female
  Weight: 61 kg

DRUGS (3)
  1. ALEVE [Suspect]
     Indication: ARTHRALGIA
     Route: 048
  2. ARIMIDEX [Concomitant]
  3. EFFEXOR [Concomitant]

REACTIONS (2)
  - INSOMNIA [None]
  - LIVER FUNCTION TEST ABNORMAL [None]
